FAERS Safety Report 10753686 (Version 2)
Quarter: 2015Q1

REPORT INFORMATION
  Report Type: Report from Study
  Country: BR (occurrence: BR)
  Receive Date: 20150201
  Receipt Date: 20150205
  Transmission Date: 20150721
  Serious: Yes (Life-Threatening)
  Sender: FDA-Public Use
  Company Number: PHHY2015BR010743

PATIENT
  Sex: Male
  Weight: 56 kg

DRUGS (2)
  1. RITALIN LA [Suspect]
     Active Substance: METHYLPHENIDATE HYDROCHLORIDE
     Indication: ATTENTION DEFICIT/HYPERACTIVITY DISORDER
     Dosage: 1 DF, QD
     Route: 065
     Dates: start: 2014
  2. ZARGUS [Suspect]
     Active Substance: RISPERIDONE
     Indication: MOOD ALTERED
     Dosage: 1.5 DF, QD (0.5 DF IN THE MORNING AND 1 DF AT NIGHT)
     Route: 065

REACTIONS (2)
  - Weight increased [Unknown]
  - Suicidal ideation [Recovered/Resolved]
